FAERS Safety Report 5271852-0 (Version None)
Quarter: 2007Q1

REPORT INFORMATION
  Report Type: 
  Country: None (occurrence: None)
  Receive Date: 20070321
  Receipt Date: 20070309
  Transmission Date: 20070707
  Serious: Yes (Other)
  Sender: FDA-Public Use
  Company Number: US-PFIZER INC-2007019700

PATIENT
  Sex: Female
  Weight: 52.2 kg

DRUGS (4)
  1. CHANTIX [Suspect]
     Indication: SMOKING CESSATION THERAPY
     Route: 048
     Dates: start: 20070304, end: 20070308
  2. LORAZEPAM [Interacting]
     Indication: ANXIETY
  3. TRIAMTERENE [Concomitant]
  4. TOPROL-XL [Concomitant]

REACTIONS (3)
  - DRUG INTERACTION [None]
  - MENTAL DISORDER [None]
  - NERVOUSNESS [None]
